FAERS Safety Report 20931385 (Version 4)
Quarter: 2023Q4

REPORT INFORMATION
  Report Type: Spontaneous
  Country: JP (occurrence: JP)
  Receive Date: 20220608
  Receipt Date: 20231024
  Transmission Date: 20240109
  Serious: Yes (Death, Other)
  Sender: FDA-Public Use
  Company Number: JP-CHUGAI-2022020676

PATIENT
  Age: 81 Year
  Sex: Female
  Weight: 47.5 kg

DRUGS (9)
  1. POLIVY [Suspect]
     Active Substance: POLATUZUMAB VEDOTIN-PIIQ
     Indication: Diffuse large B-cell lymphoma
     Dosage: 1.8 MILLIGRAM/KILOGRAM, SINGLE
     Route: 041
     Dates: start: 20220422, end: 20220422
  2. POLIVY [Suspect]
     Active Substance: POLATUZUMAB VEDOTIN-PIIQ
     Dosage: 85 MILLIGRAM, SINGLE
     Route: 041
     Dates: start: 20220413, end: 20220413
  3. RITUXAN [Suspect]
     Active Substance: RITUXIMAB
     Indication: Diffuse large B-cell lymphoma
     Dosage: 375 MILLIGRAM/SQ. METER, SINGLE
     Route: 041
     Dates: start: 20220422, end: 20220422
  4. RITUXAN [Suspect]
     Active Substance: RITUXIMAB
     Dosage: 550 MILLIGRAM, SINGLE
     Route: 041
     Dates: start: 20220412, end: 20220412
  5. BENDAMUSTINE HYDROCHLORIDE [Suspect]
     Active Substance: BENDAMUSTINE HYDROCHLORIDE
     Indication: Diffuse large B-cell lymphoma
     Dosage: 90 MILLIGRAM/SQ. METER, SINGLE
     Route: 041
     Dates: start: 20220422, end: 20220422
  6. BENDAMUSTINE HYDROCHLORIDE [Suspect]
     Active Substance: BENDAMUSTINE HYDROCHLORIDE
     Dosage: 132 MILLIGRAM, QD
     Route: 041
     Dates: start: 20220413, end: 20220414
  7. LOXOPROFEN SODIUM [Suspect]
     Active Substance: LOXOPROFEN SODIUM
     Indication: Product used for unknown indication
     Dosage: 3T/DAY
     Route: 048
     Dates: start: 20220427, end: 20220522
  8. SULFAMETHOXAZOLE\TRIMETHOPRIM [Suspect]
     Active Substance: SULFAMETHOXAZOLE\TRIMETHOPRIM
     Indication: Product used for unknown indication
     Dosage: 1T/DAY
     Route: 048
     Dates: start: 20220422, end: 20220522
  9. DECADRON [Concomitant]
     Active Substance: DEXAMETHASONE
     Dosage: UNK
     Route: 065
     Dates: start: 20220413, end: 20220414

REACTIONS (3)
  - Subdural haematoma [Fatal]
  - Fall [Unknown]
  - Myelosuppression [Unknown]

NARRATIVE: CASE EVENT DATE: 20220519
